FAERS Safety Report 6038052-8 (Version None)
Quarter: 2009Q1

REPORT INFORMATION
  Report Type: 
  Country: None (occurrence: None)
  Receive Date: 20090114
  Receipt Date: 20090114
  Transmission Date: 20090719
  Serious: Yes (Life-Threatening, Hospitalization, Disabling, Other)
  Sender: FDA-Public Use
  Company Number: None

PATIENT
  Sex: Female
  Weight: 44.9061 kg

DRUGS (1)
  1. ADVAIR DISKUS 250/50 [Suspect]
     Indication: EMPHYSEMA
     Dosage: 1 PUFF 2 X DAILY

REACTIONS (28)
  - BACK PAIN [None]
  - BLOOD CALCIUM DECREASED [None]
  - BLOOD POTASSIUM DECREASED [None]
  - BONE PAIN [None]
  - BRONCHITIS [None]
  - CATARACT [None]
  - CHRONIC OBSTRUCTIVE PULMONARY DISEASE [None]
  - COLLAPSE OF LUNG [None]
  - DEPRESSION [None]
  - DIZZINESS [None]
  - DYSPHONIA [None]
  - EAR PAIN [None]
  - HEADACHE [None]
  - HEART RATE INCREASED [None]
  - HEART RATE IRREGULAR [None]
  - HYPERTHYROIDISM [None]
  - HYPOAESTHESIA [None]
  - HYPOTENSION [None]
  - LUNG INFECTION [None]
  - MUSCLE SPASMS [None]
  - MUSCULAR WEAKNESS [None]
  - OROPHARYNGEAL PAIN [None]
  - OSTEOPOROSIS [None]
  - PAIN IN EXTREMITY [None]
  - PNEUMONIA [None]
  - RICKETS [None]
  - VITAMIN D DECREASED [None]
  - WEIGHT DECREASED [None]
